FAERS Safety Report 6763725-9 (Version None)
Quarter: 2010Q2

REPORT INFORMATION
  Report Type: 
  Country: None (occurrence: None)
  Receive Date: 20100610
  Receipt Date: 20100519
  Transmission Date: 20101027
  Serious: Yes (Hospitalization)
  Sender: FDA-Public Use
  Company Number: PHHY2010GB17953

PATIENT
  Sex: Male

DRUGS (4)
  1. CLOZARIL [Suspect]
     Indication: SCHIZOPHRENIA
     Dosage: UNK
     Route: 048
     Dates: start: 20100305, end: 20100517
  2. ANTIEPILEPTICS [Concomitant]
  3. RISPERIDONE [Concomitant]
  4. VALPROATE SODIUM [Concomitant]
     Dosage: UNK
     Route: 048

REACTIONS (9)
  - ANAEMIA [None]
  - APPETITE DISORDER [None]
  - ASTHENIA [None]
  - DIZZINESS [None]
  - EXTRAPYRAMIDAL DISORDER [None]
  - HYPONATRAEMIA [None]
  - MALAISE [None]
  - NEUTROPHIL COUNT DECREASED [None]
  - WHITE BLOOD CELL COUNT DECREASED [None]
